FAERS Safety Report 7094573-0 (Version None)
Quarter: 2010Q4

REPORT INFORMATION
  Report Type: 
  Country: None (occurrence: None)
  Receive Date: 20101110
  Receipt Date: 20101028
  Transmission Date: 20110411
  Serious: Yes (Hospitalization)
  Sender: FDA-Public Use
  Company Number: BR-ELI_LILLY_AND_COMPANY-BR201010005267

PATIENT
  Sex: Female

DRUGS (5)
  1. FORTEO [Suspect]
     Indication: OSTEOPOROSIS
     Dosage: 20 UG, DAILY (1/D)
     Route: 058
  2. PLASIL /00041901/ [Concomitant]
     Indication: GASTRIC DISORDER
     Dosage: UNK, UNKNOWN
     Route: 065
  3. DIPIRONA [Concomitant]
     Indication: PAIN IN EXTREMITY
     Dosage: UNK, UNKNOWN
     Route: 065
  4. CLORTALIDONA [Concomitant]
     Indication: BLOOD PRESSURE
     Dosage: UNK, UNKNOWN
     Route: 065
  5. ANTIBIOTICS [Concomitant]
     Indication: VARICOSE ULCERATION
     Dosage: UNK, UNKNOWN
     Route: 065

REACTIONS (4)
  - ABDOMINAL DISCOMFORT [None]
  - INFECTED SKIN ULCER [None]
  - JOINT INJURY [None]
  - NAUSEA [None]
